FAERS Safety Report 11918511 (Version 3)
Quarter: 2016Q1

REPORT INFORMATION
  Report Type: Spontaneous
  Country: DE (occurrence: DE)
  Receive Date: 20160115
  Receipt Date: 20160226
  Transmission Date: 20160526
  Serious: Yes (Hospitalization, Other)
  Sender: FDA-Public Use
  Company Number: DE-ACTELION-A-CH2016-129840

PATIENT
  Age: 52 Year
  Sex: Female

DRUGS (7)
  1. TRACLEER [Interacting]
     Active Substance: BOSENTAN
     Dosage: 62.5 MG, UNK
     Route: 048
     Dates: end: 201601
  2. YASMIN [Interacting]
     Active Substance: DROSPIRENONE\ETHINYL ESTRADIOL
     Indication: MENORRHAGIA
     Dosage: UNK
     Route: 048
     Dates: end: 201601
  3. TRACLEER [Suspect]
     Active Substance: BOSENTAN
     Indication: SCLERODERMA ASSOCIATED DIGITAL ULCER
     Dosage: UNK
     Route: 048
     Dates: start: 201502
  4. YASMIN [Interacting]
     Active Substance: DROSPIRENONE\ETHINYL ESTRADIOL
     Dosage: UNK
     Route: 003
  5. PANTOZOL [Concomitant]
     Active Substance: PANTOPRAZOLE SODIUM
     Indication: GASTROOESOPHAGEAL REFLUX DISEASE
     Dosage: 20 G, QD
     Route: 048
  6. ASPIRIN. [Concomitant]
     Active Substance: ASPIRIN
     Dosage: 100 MG, QD
     Route: 048
     Dates: start: 20131205
  7. L-THYROXINE [Concomitant]
     Active Substance: LEVOTHYROXINE
     Indication: HYPOTHYROIDISM
     Dosage: 175 MG, QD
     Route: 048

REACTIONS (6)
  - Aspartate aminotransferase increased [Recovering/Resolving]
  - Drug interaction [Recovering/Resolving]
  - Hepatic enzyme increased [Recovering/Resolving]
  - Ovarian cyst [Unknown]
  - Alanine aminotransferase increased [Recovering/Resolving]
  - Thrombocytopenia [Recovering/Resolving]

NARRATIVE: CASE EVENT DATE: 20151112
